FAERS Safety Report 12196710 (Version 1)
Quarter: 2016Q1

REPORT INFORMATION
  Report Type: Spontaneous
  Country: NL (occurrence: NL)
  Receive Date: 20160321
  Receipt Date: 20160321
  Transmission Date: 20160526
  Serious: Yes (Hospitalization)
  Sender: FDA-Public Use
  Company Number: NL-TEVA-644015ACC

PATIENT

DRUGS (10)
  1. PROGRAFT CAPSULE 1MG [Suspect]
     Active Substance: TACROLIMUS
     Dosage: 3 MILLIGRAM DAILY; TWICE DAILY 1.5 PIECES
     Route: 064
     Dates: start: 201507
  2. OMEPRAZOL CAPSULE MSR 20MG [Suspect]
     Active Substance: OMEPRAZOLE
     Dosage: 20 MILLIGRAM DAILY; ONCE DAILY ONE PIECE
     Route: 064
     Dates: start: 201507
  3. MOMETASON NEUSSPRAY 50UG/DO [Suspect]
     Active Substance: MOMETASONE
     Dosage: 300 MICROGRAM DAILY; THREE TIMES DAILY TWO PIECES
     Route: 064
     Dates: start: 201507
  4. PANCREASE HL CAPSULE MSR [Suspect]
     Active Substance: PANCRELIPASE
     Dosage: IN OWN POSSESSION
     Route: 064
     Dates: start: 201507
  5. PREDNISOLON TABLET 5MG [Suspect]
     Active Substance: PREDNISOLONE
     Dosage: 5 MILLIGRAM DAILY; ONCE DAILY ONE PIECE
     Route: 064
     Dates: start: 201507
  6. COTRIMOXAZOLE [Suspect]
     Active Substance: SULFAMETHOXAZOLE\TRIMETHOPRIM
     Dosage: IN OWN POSSESSION
     Route: 064
     Dates: start: 201507
  7. TOCOFEROL DL-ALFA DRANK 25MG/ML [Suspect]
     Active Substance: .ALPHA.-TOCOPHEROL, DL-
     Indication: CYSTIC FIBROSIS
     Dosage: ONCE DAILY 4 PIECES
     Route: 064
     Dates: start: 201507
  8. AZATHIOPRINE TABLET 25MG [Suspect]
     Active Substance: AZATHIOPRINE
     Dosage: 25 MILLIGRAM DAILY; ONCE DAILY ONE PIECE
     Route: 064
     Dates: start: 201507
  9. URSOCHOL TABLET 300MG [Suspect]
     Active Substance: URSODIOL
     Dosage: 600 MILLIGRAM DAILY; TWICE DAILY ONE PIECE
     Route: 064
     Dates: start: 201507
  10. PROPRANOLOL [Suspect]
     Active Substance: PROPRANOLOL\PROPRANOLOL HYDROCHLORIDE
     Dosage: 20 KBQ DAILY; TWICE DAILY TWO PIECES
     Route: 064
     Dates: start: 201507

REACTIONS (3)
  - Foetal exposure during pregnancy [Unknown]
  - Foetal growth restriction [Recovering/Resolving]
  - Premature baby [Unknown]

NARRATIVE: CASE EVENT DATE: 201602
